FAERS Safety Report 18987444 (Version 1)
Quarter: 2021Q1

REPORT INFORMATION
  Report Type: Spontaneous
  Country: US (occurrence: US)
  Receive Date: 20210309
  Receipt Date: 20210309
  Transmission Date: 20210420
  Serious: Yes (Hospitalization)
  Sender: FDA-Public Use
  Company Number: None

PATIENT
  Age: 59 Year
  Sex: Male

DRUGS (2)
  1. OXYCODONE (OXYCODONE HCL 10MG TAB) [Suspect]
     Active Substance: OXYCODONE HYDROCHLORIDE
     Indication: PAIN
     Dates: start: 20201212
  2. CLONAZEPAM (CLONAZEPAM 0.5MG TAB) [Suspect]
     Active Substance: CLONAZEPAM
     Indication: ANXIETY
     Dates: start: 20201212

REACTIONS (4)
  - Hypotension [None]
  - Gastroenteritis [None]
  - Nausea [None]
  - Hypovolaemia [None]

NARRATIVE: CASE EVENT DATE: 20210104
